FAERS Safety Report 17074350 (Version 1)
Quarter: 2019Q4

REPORT INFORMATION
  Report Type: Spontaneous
  Country: IT (occurrence: IT)
  Receive Date: 20191126
  Receipt Date: 20191126
  Transmission Date: 20200122
  Serious: Yes (Other)
  Sender: FDA-Public Use
  Company Number: IT-TEVA-2019-IT-1141218

PATIENT
  Age: 54 Year
  Sex: Female

DRUGS (6)
  1. SELOKEN 1 MG/ML SOLUZIONE INIETTABILE PER USO ENDOVENOSO [Suspect]
     Active Substance: METOPROLOL TARTRATE
     Indication: HYPERTENSION
     Dosage: 1 DOSAGE FORMS
     Route: 042
     Dates: start: 20190919, end: 20191001
  2. MANNITOLO BAXTER [Suspect]
     Active Substance: MANNITOL
     Indication: ACUTE KIDNEY INJURY
     Dosage: 4.5 DOSAGE FORMS
     Route: 042
     Dates: start: 20190921
  3. NORVASC [Suspect]
     Active Substance: AMLODIPINE BESYLATE
     Indication: HYPERTENSION
     Dosage: 5 MG
     Route: 048
     Dates: start: 20190919, end: 20191001
  4. TAZOCIN [Concomitant]
     Active Substance: PIPERACILLIN SODIUM\TAZOBACTAM SODIUM
  5. RAMIPRIL. [Suspect]
     Active Substance: RAMIPRIL
     Indication: HYPERTENSION
     Dosage: 5 MG
     Route: 048
     Dates: start: 20190919
  6. CATAPRESAN TTS [Suspect]
     Active Substance: CLONIDINE
     Indication: HYPERTENSION
     Dosage: 1 DOSAGE FORMS
     Route: 062
     Dates: start: 20190919

REACTIONS (2)
  - Hypertensive crisis [Recovering/Resolving]
  - Therapy non-responder [Recovering/Resolving]

NARRATIVE: CASE EVENT DATE: 20190921
